FAERS Safety Report 11220342 (Version 1)
Quarter: 2015Q2

REPORT INFORMATION
  Report Type: Spontaneous
  Country: US (occurrence: None)
  Receive Date: 20150625
  Receipt Date: 20150625
  Transmission Date: 20150821
  Serious: No
  Sender: FDA-Public Use
  Company Number: None

PATIENT
  Sex: Male

DRUGS (2)
  1. CLOZAPINE 100 MG [Suspect]
     Active Substance: CLOZAPINE
  2. PLETAL [Suspect]
     Active Substance: CILOSTAZOL

REACTIONS (4)
  - Transient ischaemic attack [None]
  - Mental status changes [None]
  - Drug dispensing error [None]
  - Sarcoidosis [None]

NARRATIVE: CASE EVENT DATE: 2015
